FAERS Safety Report 4390067-1 (Version None)
Quarter: 2004Q3

REPORT INFORMATION
  Report Type: 
  Country: None (occurrence: None)
  Receive Date: 20040701
  Receipt Date: 20040701
  Transmission Date: 20050211
  Serious: No
  Sender: FDA-Public Use
  Company Number: None

PATIENT

DRUGS (2)
  1. WELLBUTRIN SR [Suspect]
     Dosage: TABLET 150 MG
  2. WELLBUTRIN XL [Suspect]
     Dosage: TABLET 150 MG

REACTIONS (1)
  - MEDICATION ERROR [None]
